FAERS Safety Report 14991051 (Version 6)
Quarter: 2018Q4

REPORT INFORMATION
  Report Type: Spontaneous
  Country: US (occurrence: US)
  Receive Date: 20180608
  Receipt Date: 20181101
  Transmission Date: 20190204
  Serious: Yes (Hospitalization)
  Sender: FDA-Public Use
  Company Number: US-VIFOR (INTERNATIONAL) INC.-VIT-2018-05422

PATIENT
  Age: 55 Year
  Sex: Male
  Weight: 69.01 kg

DRUGS (13)
  1. PEPCID AC [Concomitant]
     Active Substance: FAMOTIDINE
  2. ASPIRIN 81 [Concomitant]
     Active Substance: ASPIRIN
  3. ZETIA [Concomitant]
     Active Substance: EZETIMIBE
  4. HUMALOG [Concomitant]
     Active Substance: INSULIN LISPRO
  5. HEPARIN SODIUM. [Concomitant]
     Active Substance: HEPARIN SODIUM
  6. TUMS [Concomitant]
     Active Substance: CALCIUM CARBONATE
  7. METOPROLOL TARTRATE. [Concomitant]
     Active Substance: METOPROLOL TARTRATE
  8. NORVASC [Concomitant]
     Active Substance: AMLODIPINE BESYLATE
  9. VELTASSA [Suspect]
     Active Substance: PATIROMER
     Indication: HYPERKALAEMIA
     Route: 048
     Dates: start: 201805
  10. FLOMAX [Concomitant]
     Active Substance: TAMSULOSIN HYDROCHLORIDE
  11. NEURONTIN [Concomitant]
     Active Substance: GABAPENTIN
  12. VELTASSA [Suspect]
     Active Substance: PATIROMER
     Route: 048
     Dates: start: 201805, end: 201808
  13. PLAVIX [Concomitant]
     Active Substance: CLOPIDOGREL BISULFATE

REACTIONS (19)
  - Diarrhoea [Recovered/Resolved]
  - Malaise [Recovering/Resolving]
  - Balance disorder [Recovering/Resolving]
  - Skin discolouration [Recovering/Resolving]
  - General physical health deterioration [Recovering/Resolving]
  - Hypersomnia [Recovering/Resolving]
  - Pain [Recovering/Resolving]
  - Fall [Recovering/Resolving]
  - Flatulence [Recovering/Resolving]
  - Post-traumatic pain [Not Recovered/Not Resolved]
  - Localised infection [Recovering/Resolving]
  - Abdominal pain upper [Recovered/Resolved]
  - Fatigue [Recovering/Resolving]
  - Asthenia [Recovering/Resolving]
  - Blood potassium increased [Recovering/Resolving]
  - Peripheral circulatory failure [Unknown]
  - Blood iron decreased [Recovering/Resolving]
  - Contusion [Recovering/Resolving]
  - Off label use [Unknown]

NARRATIVE: CASE EVENT DATE: 2018
